FAERS Safety Report 11874668 (Version 1)
Quarter: 2015Q4

REPORT INFORMATION
  Report Type: Spontaneous
  Country: DE (occurrence: DE)
  Receive Date: 20151229
  Receipt Date: 20151229
  Transmission Date: 20160305
  Serious: Yes (Other)
  Sender: FDA-Public Use
  Company Number: DE-SUN PHARMACEUTICAL INDUSTRIES LTD-2015RR-108669

PATIENT

DRUGS (7)
  1. METOPROLOL [Suspect]
     Active Substance: METOPROLOL
     Indication: HYPERTENSION
     Dosage: 190 MG, DAILY
     Route: 064
  2. DIHYDRALAZIN [Concomitant]
     Indication: HYPERTENSION
     Dosage: 25 MG, QID
     Route: 064
  3. METHYLDOPA. [Concomitant]
     Active Substance: METHYLDOPA
     Indication: HYPERTENSION
     Route: 064
  4. ASS 100 [Concomitant]
     Active Substance: ASPIRIN
     Indication: PROPHYLAXIS
     Dosage: 100 MG, DAILY
     Route: 064
  5. NIFEDIPIN RETARD [Concomitant]
     Indication: HYPERTENSION
     Dosage: 10 MG, BID
     Route: 064
  6. FEMIBION [Concomitant]
     Active Substance: VITAMINS
     Indication: PROPHYLAXIS OF NEURAL TUBE DEFECT
     Dosage: UNK
     Route: 064
     Dates: start: 20141201, end: 20150716
  7. METOPROLOL [Suspect]
     Active Substance: METOPROLOL
     Indication: HYPERTENSION
     Dosage: 47.5 MG, DAILY
     Route: 064
     Dates: start: 20150429, end: 20150716

REACTIONS (3)
  - Hypoglycaemia neonatal [Recovered/Resolved]
  - Atrial septal defect [Recovering/Resolving]
  - Inguinal hernia [Recovered/Resolved with Sequelae]

NARRATIVE: CASE EVENT DATE: 20150716
